FAERS Safety Report 23043313 (Version 1)
Quarter: 2023Q4

REPORT INFORMATION
  Report Type: Spontaneous
  Country: US (occurrence: US)
  Receive Date: 20231009
  Receipt Date: 20231009
  Transmission Date: 20240109
  Serious: Yes (Other)
  Sender: FDA-Public Use
  Company Number: US-NOVOPROD-1123841

PATIENT
  Age: 62 Year
  Sex: Female

DRUGS (1)
  1. WEGOVY [Suspect]
     Active Substance: SEMAGLUTIDE
     Indication: Product used for unknown indication
     Dosage: 1 MG
     Route: 058
     Dates: start: 20230519

REACTIONS (8)
  - Retinal tear [Not Recovered/Not Resolved]
  - Blindness unilateral [Unknown]
  - Eye disorder [Unknown]
  - Post procedural complication [Unknown]
  - Hypokinesia [Unknown]
  - Increased appetite [Unknown]
  - Pain [Unknown]
  - Drug dose titration not performed [Unknown]

NARRATIVE: CASE EVENT DATE: 20230916
